FAERS Safety Report 15284499 (Version 1)
Quarter: 2018Q3

REPORT INFORMATION
  Report Type: Spontaneous
  Country: US (occurrence: US)
  Receive Date: 20180801
  Receipt Date: 20180801
  Transmission Date: 20181010
  Serious: Yes (Other)
  Sender: FDA-Public Use
  Company Number: None

PATIENT
  Age: 56 Year
  Sex: Female
  Weight: 69.4 kg

DRUGS (1)
  1. LOSARTAN POTASSIUM. [Suspect]
     Active Substance: LOSARTAN POTASSIUM
     Indication: HYPERTENSION
     Dosage: ?          OTHER FREQUENCY:2 TABS ONCE A DAY ;?
     Route: 048
     Dates: start: 20180701, end: 20180717

REACTIONS (4)
  - Eye pruritus [None]
  - Urticaria [None]
  - Pruritus [None]
  - Lacrimation increased [None]

NARRATIVE: CASE EVENT DATE: 20180715
